FAERS Safety Report 4608829-1 (Version None)
Quarter: 2005Q1

REPORT INFORMATION
  Report Type: 
  Country: None (occurrence: None)
  Receive Date: 20050315
  Receipt Date: 20050310
  Transmission Date: 20050727
  Serious: Yes (Other)
  Sender: FDA-Public Use
  Company Number: US-GLAXOSMITHKLINE-A0549282A

PATIENT
  Sex: Female

DRUGS (1)
  1. COMPAZINE [Suspect]
     Indication: DRUG USE FOR UNKNOWN INDICATION
     Route: 065
     Dates: start: 19640101, end: 19640101

REACTIONS (3)
  - FACIAL PALSY [None]
  - MUSCLE CONTRACTIONS INVOLUNTARY [None]
  - MUSCLE CONTRACTURE [None]
